FAERS Safety Report 4779818-1 (Version None)
Quarter: 2005Q3

REPORT INFORMATION
  Report Type: 
  Country: None (occurrence: None)
  Receive Date: 20050927
  Receipt Date: 20050920
  Transmission Date: 20060218
  Serious: Yes (Death)
  Sender: FDA-Public Use
  Company Number: US-AMGEN-US151213

PATIENT
  Sex: Male

DRUGS (1)
  1. PROCRIT [Suspect]
     Indication: RENAL FAILURE CHRONIC
     Route: 058

REACTIONS (6)
  - ACQUIRED IMMUNODEFICIENCY SYNDROME [None]
  - CONDITION AGGRAVATED [None]
  - HYPERTENSION [None]
  - PATHOGEN RESISTANCE [None]
  - STAPHYLOCOCCAL SEPSIS [None]
  - TREATMENT NONCOMPLIANCE [None]
